FAERS Safety Report 5884188-1 (Version None)
Quarter: 2008Q3

REPORT INFORMATION
  Report Type: 
  Country: None (occurrence: None)
  Receive Date: 20080915
  Receipt Date: 20080910
  Transmission Date: 20090109
  Serious: Yes (Life-Threatening, Hospitalization)
  Sender: FDA-Public Use
  Company Number: FR-ASTRAZENECA-2008CG01329

PATIENT
  Age: 28291 Day
  Sex: Male

DRUGS (9)
  1. TENORMIN [Suspect]
     Route: 048
     Dates: start: 20080626, end: 20080626
  2. PREVISCAN [Interacting]
     Indication: ATRIAL FLUTTER
     Route: 048
     Dates: start: 20070101, end: 20080628
  3. PREVISCAN [Interacting]
     Route: 048
     Dates: start: 20080630
  4. PROZAC [Interacting]
     Route: 048
     Dates: start: 20080626, end: 20080626
  5. SEROPLEX [Interacting]
     Indication: DEPRESSION
     Route: 048
  6. CORTANCYL [Interacting]
     Route: 048
     Dates: start: 20080626, end: 20080626
  7. HEMIGOXINE [Concomitant]
  8. PROPOXYPHENE HCL AND ACETAMINOPHEN [Concomitant]
  9. HAVLANE [Concomitant]

REACTIONS (5)
  - BRADYCARDIA [None]
  - COMA [None]
  - DRUG INTERACTION [None]
  - INTENTIONAL OVERDOSE [None]
  - INTERNATIONAL NORMALISED RATIO INCREASED [None]
